FAERS Safety Report 25283326 (Version 4)
Quarter: 2025Q2

REPORT INFORMATION
  Report Type: Spontaneous
  Country: AU (occurrence: AU)
  Receive Date: 20250508
  Receipt Date: 20250519
  Transmission Date: 20250717
  Serious: Yes (Other)
  Sender: PFIZER
  Company Number: AU-KENVUE-20250501466

PATIENT
  Sex: Male

DRUGS (11)
  1. FLUCONAZOLE [Suspect]
     Active Substance: FLUCONAZOLE
     Route: 064
  2. GENTAMICIN SULFATE [Suspect]
     Active Substance: GENTAMICIN SULFATE
     Route: 064
  3. HEPARIN SODIUM [Suspect]
     Active Substance: HEPARIN SODIUM
     Route: 064
  4. MEROPENEM [Suspect]
     Active Substance: MEROPENEM
     Route: 064
  5. ACETAMINOPHEN [Suspect]
     Active Substance: ACETAMINOPHEN
     Route: 064
  6. AMPICILLIN SODIUM [Suspect]
     Active Substance: AMPICILLIN SODIUM
     Route: 064
  7. ENOXAPARIN SODIUM [Suspect]
     Active Substance: ENOXAPARIN SODIUM
     Route: 064
  8. CEPHALEXIN [Suspect]
     Active Substance: CEPHALEXIN
     Route: 064
  9. AMOXICILLIN [Suspect]
     Active Substance: AMOXICILLIN
     Route: 064
  10. CEFTRIAXONE [Suspect]
     Active Substance: CEFTRIAXONE
     Route: 064
  11. RANITIDINE [Suspect]
     Active Substance: RANITIDINE
     Route: 064

REACTIONS (10)
  - Foetal exposure during pregnancy [Unknown]
  - Cerebral palsy [Unknown]
  - Conductive deafness [Unknown]
  - Congenital multiplex arthrogryposis [Unknown]
  - Diplegia [Unknown]
  - Talipes [Unknown]
  - Hypotonia [Unknown]
  - Joint contracture [Unknown]
  - Joint dislocation [Unknown]
  - Otitis media [Unknown]
